FAERS Safety Report 8314430-9 (Version None)
Quarter: 2012Q2

REPORT INFORMATION
  Report Type: 
  Country: None (occurrence: None)
  Receive Date: 20120426
  Receipt Date: 20120420
  Transmission Date: 20120825
  Serious: Yes (Other)
  Sender: FDA-Public Use
  Company Number: CA-ROCHE-1048894

PATIENT
  Sex: Female
  Weight: 113.5 kg

DRUGS (13)
  1. LYRICA [Concomitant]
  2. MABTHERA [Suspect]
     Indication: SJOGREN'S SYNDROME
     Dates: start: 20120416
  3. IMOVANE [Concomitant]
  4. CLONAZEPAM [Concomitant]
  5. LASIX [Concomitant]
  6. VITAMIN D [Concomitant]
  7. PANTOPRAZOLE SODIUM [Concomitant]
  8. FOLIC ACID [Concomitant]
  9. MABTHERA [Suspect]
     Indication: RHEUMATOID ARTHRITIS
     Route: 042
     Dates: start: 20120309
  10. PREDNISONE TAB [Concomitant]
  11. ATIVAN [Concomitant]
  12. CALCIUM [Concomitant]
  13. NORTRIPTYLINE HCL [Concomitant]

REACTIONS (4)
  - FATIGUE [None]
  - HYPOGLYCAEMIA [None]
  - SKIN BURNING SENSATION [None]
  - PAIN OF SKIN [None]
